FAERS Safety Report 4810891-8 (Version None)
Quarter: 2005Q4

REPORT INFORMATION
  Report Type: 
  Country: None (occurrence: None)
  Receive Date: 20051025
  Receipt Date: 20050726
  Transmission Date: 20060501
  Serious: Yes (Hospitalization)
  Sender: FDA-Public Use
  Company Number: 2005BH000887

PATIENT
  Age: 79 Year
  Sex: Female
  Weight: 146.5118 kg

DRUGS (15)
  1. HEPARIN SODIUM [Suspect]
     Indication: AORTIC VALVE REPLACEMENT
     Dates: start: 20030101
  2. PANTOPRAZOLE [Concomitant]
  3. AMIODARONE [Concomitant]
  4. IPRATROPIUM BROMIDE [Concomitant]
  5. ALBUTEROL [Concomitant]
  6. FOLIC ACID [Concomitant]
  7. LEVOTHYROXINE [Concomitant]
  8. LOTRIMIN [Concomitant]
  9. WARFARIN SODIUM [Concomitant]
  10. NYSTATIN [Concomitant]
  11. DOCUSATE SODIUM [Concomitant]
  12. METOCLOPRAMIDE [Concomitant]
  13. ZINC SULFATE [Concomitant]
  14. IRON SULFATETHIAMIN COMPOUND TAB [Concomitant]
  15. REGULAR INSULIN [Concomitant]

REACTIONS (20)
  - BLOOD ALBUMIN DECREASED [None]
  - BRADYCARDIA [None]
  - CARDIAC FAILURE CONGESTIVE [None]
  - DECUBITUS ULCER [None]
  - DERMATITIS BULLOUS [None]
  - ECCHYMOSIS [None]
  - FAECAL INCONTINENCE [None]
  - FUNGAL SKIN INFECTION [None]
  - GASTROINTESTINAL HAEMORRHAGE [None]
  - GENERALISED OEDEMA [None]
  - HAEMATOCRIT DECREASED [None]
  - HAEMOGLOBIN DECREASED [None]
  - HEPARIN-INDUCED THROMBOCYTOPENIA [None]
  - HYPERCHOLESTEROLAEMIA [None]
  - HYPERTENSION [None]
  - HYPOTHYROIDISM [None]
  - LOW CARDIAC OUTPUT SYNDROME [None]
  - POST PROCEDURAL COMPLICATION [None]
  - SICK SINUS SYNDROME [None]
  - TACHYCARDIA [None]
